FAERS Safety Report 10180662 (Version 1)
Quarter: 2014Q2

REPORT INFORMATION
  Report Type: Spontaneous
  Country: US (occurrence: US)
  Receive Date: 20140519
  Receipt Date: 20140519
  Transmission Date: 20141212
  Serious: No
  Sender: FDA-Public Use
  Company Number: US-AMGEN INC.-USASP2014021089

PATIENT
  Sex: Female

DRUGS (2)
  1. PROLIA [Suspect]
     Indication: OSTEOPOROSIS POSTMENOPAUSAL
     Dosage: UNK
     Route: 030
     Dates: start: 2012
  2. INFLUENZA VACCINE [Concomitant]

REACTIONS (4)
  - Injection site mass [Not Recovered/Not Resolved]
  - Lipoma [Not Recovered/Not Resolved]
  - Incorrect route of drug administration [Unknown]
  - Osteoporosis [Unknown]
